FAERS Safety Report 8243970-6 (Version None)
Quarter: 2012Q1

REPORT INFORMATION
  Report Type: 
  Country: None (occurrence: None)
  Receive Date: 20120329
  Receipt Date: 20111027
  Transmission Date: 20120608
  Serious: No
  Sender: FDA-Public Use
  Company Number: US-MYLANLABS-2011S1022169

PATIENT
  Age: 69 Year
  Sex: Female

DRUGS (3)
  1. ESTRADIOL [Suspect]
     Indication: HORMONE REPLACEMENT THERAPY
     Dosage: QWK
     Route: 062
     Dates: start: 20110925, end: 20110926
  2. ESTRADIOL [Suspect]
     Dosage: QWK
     Route: 062
     Dates: start: 20110926, end: 20110926
  3. LEVOXYL [Concomitant]
     Indication: THYROID DISORDER
     Route: 048

REACTIONS (6)
  - CHEST DISCOMFORT [None]
  - HEART RATE INCREASED [None]
  - FEELING JITTERY [None]
  - HEADACHE [None]
  - ANXIETY [None]
  - FLUSHING [None]
